FAERS Safety Report 11692831 (Version 1)
Quarter: 2015Q4

REPORT INFORMATION
  Report Type: Spontaneous
  Country: US (occurrence: None)
  Receive Date: 20151102
  Receipt Date: 20151102
  Transmission Date: 20160304
  Serious: Yes (Life-Threatening, Hospitalization)
  Sender: FDA-Public Use
  Company Number: None

PATIENT
  Age: 54 Year
  Sex: Female
  Weight: 52.62 kg

DRUGS (8)
  1. PLEGRIDY [Suspect]
     Active Substance: PEGINTERFERON BETA-1A
     Indication: MULTIPLE SCLEROSIS
     Dosage: 2 INJECTOR PENS EVERY 14 DAYS SUBCUTANEOUS
     Route: 058
  2. GABAPENTIN. [Concomitant]
     Active Substance: GABAPENTIN
  3. IBUPRPOFEN [Concomitant]
  4. AMLODIPINE [Concomitant]
     Active Substance: AMLODIPINE BESYLATE
  5. PROVIGIL [Concomitant]
     Active Substance: MODAFINIL
  6. NEXIUM [Concomitant]
     Active Substance: ESOMEPRAZOLE MAGNESIUM
  7. LORAZEPAM. [Concomitant]
     Active Substance: LORAZEPAM
  8. TIZANIDINE. [Concomitant]
     Active Substance: TIZANIDINE

REACTIONS (3)
  - Immune thrombocytopenic purpura [None]
  - Anaemia [None]
  - Neutropenia [None]

NARRATIVE: CASE EVENT DATE: 20151005
